FAERS Safety Report 18680569 (Version 1)
Quarter: 2020Q4

REPORT INFORMATION
  Report Type: Spontaneous
  Country: US (occurrence: US)
  Receive Date: 20201228
  Receipt Date: 20201228
  Transmission Date: 20210114
  Serious: Yes (Hospitalization)
  Sender: FDA-Public Use
  Company Number: None

PATIENT
  Sex: Male

DRUGS (8)
  1. HUMIRA [Suspect]
     Active Substance: ADALIMUMAB
     Indication: ANKYLOSING SPONDYLITIS
     Dosage: ?          OTHER DOSE:1 PEN;?
     Route: 058
     Dates: start: 20201204
  2. FUROSEMIDE. [Concomitant]
     Active Substance: FUROSEMIDE
  3. HYDROCCO/APAP [Concomitant]
  4. MELOXICAM. [Concomitant]
     Active Substance: MELOXICAM
  5. PNEUMONIA VACCINE [Suspect]
     Active Substance: PNEUMOCOCCAL VACCINE POLYVALENT
  6. HUMIRA [Suspect]
     Active Substance: ADALIMUMAB
     Indication: SPINAL DISORDER
     Dosage: ?          OTHER DOSE:1 PEN;?
     Route: 058
     Dates: start: 20201204
  7. ALLOPURINOL. [Concomitant]
     Active Substance: ALLOPURINOL
  8. FLU SHOT [Suspect]
     Active Substance: INFLUENZA VIRUS VACCINE

REACTIONS (3)
  - Malaise [None]
  - Ankylosing spondylitis [None]
  - Vaccination complication [None]
